FAERS Safety Report 16624753 (Version 1)
Quarter: 2019Q3

REPORT INFORMATION
  Report Type: Spontaneous
  Country: CA (occurrence: CA)
  Receive Date: 20190724
  Receipt Date: 20190724
  Transmission Date: 20191004
  Serious: Yes (Hospitalization)
  Sender: FDA-Public Use
  Company Number: CA-PFIZER INC-2019310628

PATIENT
  Age: 22 Year
  Sex: Female
  Weight: 56 kg

DRUGS (1)
  1. DEPO-PROVERA [Suspect]
     Active Substance: MEDROXYPROGESTERONE ACETATE
     Dosage: UNK UNK, EVERY 3 MONTHS
     Route: 030

REACTIONS (5)
  - No reaction on previous exposure to drug [Recovering/Resolving]
  - Injection site swelling [Recovering/Resolving]
  - Pain [Recovering/Resolving]
  - Petechiae [Recovering/Resolving]
  - Livedo reticularis [Recovering/Resolving]
